FAERS Safety Report 21355418 (Version 1)
Quarter: 2022Q3

REPORT INFORMATION
  Report Type: Spontaneous
  Country: US (occurrence: US)
  Receive Date: 20220920
  Receipt Date: 20220920
  Transmission Date: 20221026
  Serious: No
  Sender: FDA-Public Use
  Company Number: US-PFIZER INC-PV202200054301

PATIENT
  Age: 73 Year
  Sex: Female
  Weight: 83.01 kg

DRUGS (2)
  1. GENOTROPIN [Suspect]
     Active Substance: SOMATROPIN
     Dosage: UNK, DAILY
  2. GENOTROPIN [Suspect]
     Active Substance: SOMATROPIN
     Dosage: 0.9 ML ( AM TAKING 0.9 MILLILITER, 4 TIMES A WEEK, THAT IS THE CURRENT DOSE BUT IT CHANGES ON OCCASI

REACTIONS (2)
  - Device information output issue [Unknown]
  - Device leakage [Unknown]
